FAERS Safety Report 5426744-0 (Version None)
Quarter: 2007Q3

REPORT INFORMATION
  Report Type: 
  Country: None (occurrence: None)
  Receive Date: 20070731
  Receipt Date: 20070611
  Transmission Date: 20080115
  Serious: No
  Sender: FDA-Public Use
  Company Number: 2005PV003371

PATIENT
  Age: 65 Year
  Sex: Female
  Weight: 117.5 kg

DRUGS (9)
  1. EXENATIDE(EXENATIDE) PEN, DISPOSABLE [Suspect]
     Indication: TYPE 2 DIABETES MELLITUS
     Dosage: 10 UG, 2/D, SUBCUTANEOUS; 10 UG, 2/D, SUBCUTANEOUS; 5 UG, 2/D, SUBCUTANEOUS; 5 UG, 2/D, SUBCUTANEOUS
     Route: 058
     Dates: start: 20050101, end: 20050101
  2. EXENATIDE(EXENATIDE) PEN, DISPOSABLE [Suspect]
     Indication: TYPE 2 DIABETES MELLITUS
     Dosage: 10 UG, 2/D, SUBCUTANEOUS; 10 UG, 2/D, SUBCUTANEOUS; 5 UG, 2/D, SUBCUTANEOUS; 5 UG, 2/D, SUBCUTANEOUS
     Route: 058
     Dates: start: 20051104, end: 20050101
  3. EXENATIDE(EXENATIDE) PEN, DISPOSABLE [Suspect]
     Indication: TYPE 2 DIABETES MELLITUS
     Dosage: 10 UG, 2/D, SUBCUTANEOUS; 10 UG, 2/D, SUBCUTANEOUS; 5 UG, 2/D, SUBCUTANEOUS; 5 UG, 2/D, SUBCUTANEOUS
     Route: 058
     Dates: start: 20050921, end: 20051021
  4. EXENATIDE(EXENATIDE) PEN, DISPOSABLE [Suspect]
     Indication: TYPE 2 DIABETES MELLITUS
     Dosage: 10 UG, 2/D, SUBCUTANEOUS; 10 UG, 2/D, SUBCUTANEOUS; 5 UG, 2/D, SUBCUTANEOUS; 5 UG, 2/D, SUBCUTANEOUS
     Route: 058
     Dates: start: 20050921, end: 20051021
  5. EXENATIDE(EXENATIDE) PEN, DISPOSABLE [Suspect]
     Indication: TYPE 2 DIABETES MELLITUS
     Dosage: 10 UG, 2/D, SUBCUTANEOUS; 10 UG, 2/D, SUBCUTANEOUS; 5 UG, 2/D, SUBCUTANEOUS; 5 UG, 2/D, SUBCUTANEOUS
     Route: 058
     Dates: start: 20050101
  6. EXENATIDE(EXENATIDE) PEN, DISPOSABLE [Suspect]
  7. EXENATIDE PEN, DISPOSABLE DEVICE (EXENATIDE PEN) [Concomitant]
  8. GLUCOTROL [Concomitant]
  9. GLUCOPHAGE [Concomitant]

REACTIONS (12)
  - BLOOD GLUCOSE DECREASED [None]
  - BLOOD GLUCOSE INCREASED [None]
  - CYSTITIS [None]
  - EMOTIONAL DISTRESS [None]
  - FATIGUE [None]
  - FEELING HOT [None]
  - HYPERVENTILATION [None]
  - INJECTION SITE ERYTHEMA [None]
  - NAUSEA [None]
  - RETCHING [None]
  - URINARY TRACT INFECTION [None]
  - WEIGHT DECREASED [None]
